FAERS Safety Report 6331822-8 (Version None)
Quarter: 2009Q3

REPORT INFORMATION
  Report Type: 
  Country: None (occurrence: None)
  Receive Date: 20090826
  Receipt Date: 20090813
  Transmission Date: 20100115
  Serious: Yes (Other)
  Sender: FDA-Public Use
  Company Number: TRP_06374_2009

PATIENT
  Sex: Male
  Weight: 54.3863 kg

DRUGS (8)
  1. RIBASPHERE [Suspect]
     Indication: HEPATITIS C
     Dosage: 1000 MG, DAILY
     Dates: start: 20090614
  2. RIBAVIRIN [Suspect]
     Indication: HEPATITIS C
     Dosage: DF
     Dates: start: 20060101, end: 20060101
  3. PEGASYS [Suspect]
     Indication: HEPATITIS C
     Dosage: DF, 180 UG, 1X/WEEK
     Dates: start: 20060101, end: 20060101
  4. PEGASYS [Suspect]
     Indication: HEPATITIS C
     Dosage: DF, 180 UG, 1X/WEEK
     Dates: start: 20090614
  5. OXYCONTIN [Concomitant]
  6. METHADONE [Concomitant]
  7. SOMA [Concomitant]
  8. XANAX [Concomitant]

REACTIONS (23)
  - APHTHOUS STOMATITIS [None]
  - ARTHRALGIA [None]
  - BACK PAIN [None]
  - BLOOD GLUCOSE INCREASED [None]
  - CONDITION AGGRAVATED [None]
  - CONJUNCTIVITIS INFECTIVE [None]
  - DECREASED APPETITE [None]
  - DIARRHOEA [None]
  - EMPHYSEMA [None]
  - GROIN PAIN [None]
  - HOMICIDAL IDEATION [None]
  - HYPERHIDROSIS [None]
  - LIP ULCERATION [None]
  - NAUSEA [None]
  - PSORIASIS [None]
  - PYREXIA [None]
  - RASH PAPULAR [None]
  - RASH PRURITIC [None]
  - STRESS [None]
  - SUICIDAL IDEATION [None]
  - THIRST [None]
  - VOMITING [None]
  - WEIGHT DECREASED [None]
